FAERS Safety Report 18880516 (Version 1)
Quarter: 2021Q1

REPORT INFORMATION
  Report Type: Spontaneous
  Country: CO (occurrence: CO)
  Receive Date: 20210212
  Receipt Date: 20210212
  Transmission Date: 20210420
  Serious: Yes (Disabling)
  Sender: FDA-Public Use
  Company Number: CO-ROCHE-2768040

PATIENT
  Age: 58 Year
  Sex: Female
  Weight: 60 kg

DRUGS (1)
  1. ACTEMRA [Suspect]
     Active Substance: TOCILIZUMAB
     Indication: RHEUMATOID ARTHRITIS
     Dosage: INJECTABLE SOLUTION 162MG/ 0.9ML
     Route: 058
     Dates: start: 20171020

REACTIONS (2)
  - Gait disturbance [Unknown]
  - Pain in extremity [Unknown]

NARRATIVE: CASE EVENT DATE: 202012
